FAERS Safety Report 5297287-2 (Version None)
Quarter: 2007Q2

REPORT INFORMATION
  Report Type: 
  Country: None (occurrence: None)
  Receive Date: 20070416
  Receipt Date: 20070411
  Transmission Date: 20071010
  Serious: Yes (Other)
  Sender: FDA-Public Use
  Company Number: DEWYE418611APR07

PATIENT
  Sex: Female
  Weight: 70 kg

DRUGS (1)
  1. VENLAFAXINE HCL [Suspect]
     Indication: DEPRESSION
     Dates: start: 20040524

REACTIONS (1)
  - ECTOPIC PREGNANCY [None]
